FAERS Safety Report 8310294-8 (Version None)
Quarter: 2012Q2

REPORT INFORMATION
  Report Type: 
  Country: None (occurrence: None)
  Receive Date: 20120425
  Receipt Date: 20120419
  Transmission Date: 20120825
  Serious: No
  Sender: FDA-Public Use
  Company Number: US-PFIZER INC-2012097765

PATIENT
  Age: 81 Year
  Sex: Female
  Weight: 48.073 kg

DRUGS (6)
  1. PREPARATION H HEMORRHOIDAL SUPPOSITORIES [Suspect]
     Indication: FLATULENCE
  2. PREPARATION H HEMORRHOIDAL SUPPOSITORIES [Suspect]
     Indication: PAIN
  3. AZITHROMYCIN [Suspect]
     Dosage: 250 MG, TWO TABLETS
     Dates: start: 20120413, end: 20120415
  4. AZITHROMYCIN [Suspect]
     Dosage: 250 MG, DAILY
     Dates: end: 20120415
  5. PREPARATION H HEMORRHOIDAL SUPPOSITORIES [Suspect]
     Indication: CONSTIPATION
     Dosage: UNK, DAILY
     Dates: start: 20120415, end: 20120417
  6. PREPARATION H HEMORRHOIDAL SUPPOSITORIES [Suspect]
     Indication: BURNING SENSATION

REACTIONS (7)
  - PAIN [None]
  - DIARRHOEA [None]
  - ANAL INFLAMMATION [None]
  - FLATULENCE [None]
  - ACTIVITIES OF DAILY LIVING IMPAIRED [None]
  - CONSTIPATION [None]
  - BURNING SENSATION [None]
